FAERS Safety Report 8008808-0 (Version None)
Quarter: 2011Q4

REPORT INFORMATION
  Report Type: 
  Country: None (occurrence: None)
  Receive Date: 20111227
  Receipt Date: 20111216
  Transmission Date: 20120403
  Serious: Yes (Other)
  Sender: FDA-Public Use
  Company Number: PHHY2011JP109943

PATIENT

DRUGS (2)
  1. TEGRETOL [Suspect]
     Dosage: UNK UKN, UNK
     Route: 048
  2. GRAPEFRUIT JUICE [Concomitant]
     Dosage: UNK UKN, UNK

REACTIONS (2)
  - CONVULSION [None]
  - DRUG LEVEL INCREASED [None]
